FAERS Safety Report 5397054-5 (Version None)
Quarter: 2007Q3

REPORT INFORMATION
  Report Type: 
  Country: None (occurrence: None)
  Receive Date: 20070723
  Receipt Date: 20070717
  Transmission Date: 20080115
  Serious: Yes (Other)
  Sender: FDA-Public Use
  Company Number: 2007SP010056

PATIENT
  Age: 65 Year
  Sex: Female
  Weight: 63.9572 kg

DRUGS (7)
  1. CLARITIN [Suspect]
     Indication: LACRIMATION INCREASED
     Dosage: 1 DF;QD;PO
     Route: 048
     Dates: start: 20070514, end: 20070517
  2. CLARITIN [Suspect]
     Indication: RHINORRHOEA
     Dosage: 1 DF;QD;PO
     Route: 048
     Dates: start: 20070514, end: 20070517
  3. WELLBUTRIN [Suspect]
     Indication: DEPRESSION
     Dates: start: 20010101
  4. DETROL LA [Suspect]
     Indication: HYPERTONIC BLADDER
     Dates: start: 20020101
  5. LIPITOR [Suspect]
     Indication: BLOOD CHOLESTEROL INCREASED
     Dosage: 10 MG;
     Dates: start: 20040101
  6. AMBIEN CR [Suspect]
     Indication: INSOMNIA
     Dates: start: 20010101
  7. ESTROGEN NOS [Concomitant]

REACTIONS (11)
  - BLISTER [None]
  - BURNING SENSATION [None]
  - CONFUSIONAL STATE [None]
  - FATIGUE [None]
  - HYPERSENSITIVITY [None]
  - LOSS OF CONSCIOUSNESS [None]
  - PHARMACEUTICAL PRODUCT COMPLAINT [None]
  - PRURITUS [None]
  - RASH ERYTHEMATOUS [None]
  - ROAD TRAFFIC ACCIDENT [None]
  - URTICARIA [None]
